FAERS Safety Report 5200447-X (Version None)
Quarter: 2006Q4

REPORT INFORMATION
  Report Type: 
  Country: None (occurrence: None)
  Receive Date: 20061016
  Receipt Date: 20060811
  Transmission Date: 20070319
  Serious: No
  Sender: FDA-Public Use
  Company Number: 2006SP003063

PATIENT
  Sex: Male
  Weight: 81.6475 kg

DRUGS (7)
  1. LUNESTA [Suspect]
     Dosage: 3 MG; HS; ORAL
     Route: 048
     Dates: start: 20060701, end: 20060702
  2. TOPROL-XL [Concomitant]
  3. LOTREL [Concomitant]
  4. TAMSULOSIN HCL [Concomitant]
  5. VYTORIN [Concomitant]
  6. NITROGLYCERIN [Concomitant]
  7. WELCHOL [Concomitant]

REACTIONS (1)
  - DYSGEUSIA [None]
